FAERS Safety Report 19499882 (Version 9)
Quarter: 2022Q1

REPORT INFORMATION
  Report Type: Report from Study
  Country: CA (occurrence: CA)
  Receive Date: 20210706
  Receipt Date: 20220314
  Transmission Date: 20220423
  Serious: Yes (Death, Hospitalization, Other)
  Sender: FDA-Public Use
  Company Number: CA-OTSUKA-2021_009189

PATIENT
  Age: 76 Year
  Sex: Male

DRUGS (1)
  1. CEDAZURIDINE\DECITABINE [Suspect]
     Active Substance: CEDAZURIDINE\DECITABINE
     Indication: Myelodysplastic syndrome
     Dosage: (35 MG DECITABINE AND 100 MG CEDAZURIDINE), QD
     Route: 048
     Dates: start: 20210311

REACTIONS (19)
  - Death [Fatal]
  - Blast cell count increased [Unknown]
  - Cerebrovascular accident [Unknown]
  - Platelet transfusion [Unknown]
  - Packed red blood cell transfusion [Unknown]
  - Full blood count abnormal [Unknown]
  - Haematocrit decreased [Unknown]
  - Mean cell volume increased [Unknown]
  - Mean cell haemoglobin increased [Unknown]
  - Red cell distribution width increased [Unknown]
  - General physical health deterioration [Unknown]
  - COVID-19 [Unknown]
  - Red blood cell count decreased [Unknown]
  - Neutrophil count decreased [Unknown]
  - White blood cell count decreased [Unknown]
  - Haemoglobin decreased [Unknown]
  - Constipation [Recovered/Resolved]
  - Diarrhoea [Unknown]
  - Product use issue [Unknown]

NARRATIVE: CASE EVENT DATE: 20210311
